APPROVED DRUG PRODUCT: AMINOCAPROIC ACID
Active Ingredient: AMINOCAPROIC ACID
Strength: 0.25GM/ML
Dosage Form/Route: SOLUTION;ORAL
Application: A074759 | Product #001
Applicant: EPIC PHARMA LLC
Approved: Sep 2, 1998 | RLD: No | RS: No | Type: DISCN